FAERS Safety Report 18493720 (Version 1)
Quarter: 2020Q4

REPORT INFORMATION
  Report Type: Spontaneous
  Country: US (occurrence: US)
  Receive Date: 20201112
  Receipt Date: 20201112
  Transmission Date: 20210114
  Serious: No
  Sender: FDA-Public Use
  Company Number: US-JNJFOC-20201051595

PATIENT
  Age: 71 Year
  Sex: Male
  Weight: 89.89 kg

DRUGS (1)
  1. MENS ROGAINE EXTRA STRENGTH [Suspect]
     Active Substance: MINOXIDIL
     Indication: ALOPECIA
     Dosage: DOSE AND FREQUENCY: 1 ML FOR TWICE DAILY.?THE PRODUCT WAS LAST ADMINISTERED ON : 27-OCT-2020.
     Route: 061
     Dates: start: 202010

REACTIONS (2)
  - Application site exfoliation [Not Recovered/Not Resolved]
  - Application site scab [Not Recovered/Not Resolved]

NARRATIVE: CASE EVENT DATE: 202010
